FAERS Safety Report 6604149-4 (Version None)
Quarter: 2010Q1

REPORT INFORMATION
  Report Type: 
  Country: None (occurrence: None)
  Receive Date: 20100226
  Receipt Date: 20090610
  Transmission Date: 20100710
  Serious: No
  Sender: FDA-Public Use
  Company Number: A0790130A

PATIENT
  Age: 9 Year
  Sex: Male

DRUGS (5)
  1. LAMICTAL CD [Suspect]
     Indication: BIPOLAR DISORDER
     Dosage: 75MG PER DAY
     Route: 048
     Dates: start: 20090501
  2. DEPAKOTE [Suspect]
     Dosage: 2000MG PER DAY
  3. LITHIUM [Concomitant]
  4. ABILIFY [Concomitant]
  5. COGENTIN [Concomitant]

REACTIONS (7)
  - CENTRAL AUDITORY PROCESSING DISORDER [None]
  - COGNITIVE DISORDER [None]
  - DYSARTHRIA [None]
  - FATIGUE [None]
  - RASH [None]
  - SOMNOLENCE [None]
  - SPEECH DISORDER [None]
